FAERS Safety Report 7468250-8 (Version None)
Quarter: 2011Q2

REPORT INFORMATION
  Report Type: 
  Country: None (occurrence: None)
  Receive Date: 20110509
  Receipt Date: 20110427
  Transmission Date: 20111010
  Serious: Yes (Hospitalization)
  Sender: FDA-Public Use
  Company Number: GB-TEVA-274872ISR

PATIENT
  Age: 50 Year
  Sex: Female

DRUGS (5)
  1. CARBAMAZEPINE [Interacting]
     Indication: EPILEPSY
  2. FLOXACILLIN SODIUM [Interacting]
     Indication: STAPHYLOCOCCAL SEPSIS
     Route: 042
  3. PHENYTOIN [Suspect]
     Indication: EPILEPSY
  4. PHENOBARBITAL TAB [Interacting]
     Indication: EPILEPSY
  5. ACETAMINOPHEN [Interacting]
     Indication: STAPHYLOCOCCAL SEPSIS
     Dosage: 4 GRAM;

REACTIONS (3)
  - DRUG INTERACTION [None]
  - SEPSIS [None]
  - METABOLIC ACIDOSIS [None]
